FAERS Safety Report 7817305-4 (Version None)
Quarter: 2011Q4

REPORT INFORMATION
  Report Type: 
  Country: None (occurrence: None)
  Receive Date: 20111017
  Receipt Date: 20111011
  Transmission Date: 20120403
  Serious: Yes (Hospitalization)
  Sender: FDA-Public Use
  Company Number: FR-KINGPHARMUSA00001-K201101206

PATIENT
  Age: 84 Year
  Sex: Male

DRUGS (17)
  1. ALTACE [Suspect]
     Dosage: 5 MG, QD
     Route: 048
     Dates: end: 20110815
  2. RABEPRAZOLE SODIUM [Concomitant]
     Dosage: 150 MG, BID
     Route: 048
  3. ACETAMINOPHEN [Concomitant]
  4. ZOPICLONE [Suspect]
     Dosage: 7.5 MG, QD
     Route: 048
     Dates: end: 20110815
  5. ALLOPURINOL [Concomitant]
  6. POLYETHYLENE GLYCOL [Concomitant]
  7. LASIX [Suspect]
     Dosage: 40 MG, BID
     Route: 048
     Dates: end: 20110815
  8. ZOPICLONE [Suspect]
     Dosage: 3.75 MG, QD
     Route: 048
     Dates: start: 20110801
  9. BISOPROLOL FUMARATE [Suspect]
     Dosage: 2.5 MG, QD
     Route: 048
     Dates: start: 20110801
  10. BISOPROLOL FUMARATE [Suspect]
     Dosage: 5 MG, QD
     Route: 048
     Dates: end: 20110815
  11. ALTACE [Suspect]
     Dosage: 2.5 MG, QD
     Route: 048
     Dates: start: 20110801
  12. TRAMADOL HCL [Suspect]
     Dosage: 150 MG, BID
     Route: 048
     Dates: end: 20110815
  13. TRAMADOL HCL [Suspect]
     Dosage: 75 MG, BID
     Route: 048
     Dates: start: 20110801
  14. POTASSIUM CHLORIDE [Concomitant]
  15. LASIX [Suspect]
     Dosage: 20 MG, BID
     Route: 048
     Dates: start: 20110801
  16. PREVISCAN [Suspect]
     Dosage: UNK
     Route: 048
     Dates: start: 20080101, end: 20110815
  17. DIGOXIN [Concomitant]

REACTIONS (2)
  - FALL [None]
  - HAEMATOMA [None]
